FAERS Safety Report 8599041-2 (Version None)
Quarter: 2012Q3

REPORT INFORMATION
  Report Type: 
  Country: None (occurrence: None)
  Receive Date: 20120816
  Receipt Date: 20120806
  Transmission Date: 20120928
  Serious: Yes (Other)
  Sender: FDA-Public Use
  Company Number: KR-PFIZER INC-2012198470

PATIENT
  Age: 73 Year
  Sex: Male

DRUGS (3)
  1. CISPLATIN [Suspect]
     Indication: HEPATIC NEOPLASM MALIGNANT NON-RESECTABLE
     Dosage: 60 MG/M2, CYCLIC
     Route: 013
  2. EPIRUBICIN [Suspect]
     Indication: HEPATIC NEOPLASM MALIGNANT NON-RESECTABLE
     Dosage: 50 MG/M2, CYCLIC
     Route: 013
  3. LIPIODOL [Concomitant]
     Dosage: UNK

REACTIONS (1)
  - HEPATITIS C [None]
